FAERS Safety Report 6105543-0 (Version None)
Quarter: 2009Q1

REPORT INFORMATION
  Report Type: 
  Country: None (occurrence: None)
  Receive Date: 20090306
  Receipt Date: 20090225
  Transmission Date: 20090719
  Serious: Yes (Other)
  Sender: FDA-Public Use
  Company Number: B0563262A

PATIENT
  Age: 23 Year
  Sex: Male

DRUGS (2)
  1. LIOTHYRONINE SODIUM [Suspect]
     Dosage: 64UG PER DAY
  2. PROPRANOLOL [Suspect]
     Dosage: 40MG TWICE PER DAY

REACTIONS (17)
  - ABASIA [None]
  - ATRIOVENTRICULAR BLOCK FIRST DEGREE [None]
  - BLOOD CREATININE DECREASED [None]
  - BLOOD PHOSPHORUS DECREASED [None]
  - BLOOD POTASSIUM DECREASED [None]
  - BLOOD THYROID STIMULATING HORMONE DECREASED [None]
  - HYPERHIDROSIS [None]
  - HYPERKALAEMIA [None]
  - HYPERTHYROIDISM [None]
  - HYPOREFLEXIA [None]
  - MALAISE [None]
  - MUSCULAR WEAKNESS [None]
  - NERVOUS SYSTEM DISORDER [None]
  - PARALYSIS FLACCID [None]
  - THYROGLOBULIN DECREASED [None]
  - THYROTOXIC PERIODIC PARALYSIS [None]
  - TRI-IODOTHYRONINE DECREASED [None]
